FAERS Safety Report 9063269 (Version 1)
Quarter: 2013Q1

REPORT INFORMATION
  Report Type: Report from Study
  Country: US (occurrence: US)
  Receive Date: 20130131
  Receipt Date: 20130131
  Transmission Date: 20140127
  Serious: No
  Sender: FDA-Public Use
  Company Number: US-ABBOTT-12P-163-1008272-00

PATIENT
  Age: 46 Year
  Sex: Male

DRUGS (11)
  1. HUMIRA [Suspect]
     Indication: CROHN^S DISEASE
     Dates: start: 20120830
  2. FOLIC ACID [Concomitant]
     Indication: PRODUCT USED FOR UNKNOWN INDICATION
  3. MULTIVITAMIN WITHOUT IRON [Concomitant]
     Indication: PRODUCT USED FOR UNKNOWN INDICATION
  4. ACIDOPHILUS [Concomitant]
     Indication: PRODUCT USED FOR UNKNOWN INDICATION
  5. PRILOSEC [Concomitant]
     Indication: PRODUCT USED FOR UNKNOWN INDICATION
  6. WELCHOL [Concomitant]
     Indication: PRODUCT USED FOR UNKNOWN INDICATION
  7. METHOTREXATE [Concomitant]
     Indication: PRODUCT USED FOR UNKNOWN INDICATION
  8. CITRACAL [Concomitant]
     Indication: PRODUCT USED FOR UNKNOWN INDICATION
  9. CURCUMIN [Concomitant]
     Indication: ANTIINFLAMMATORY THERAPY
  10. PREDNISONE [Concomitant]
     Indication: ANTIINFLAMMATORY THERAPY
     Dosage: 15MG DAILY
     Dates: end: 201209
  11. PREDNISONE [Concomitant]
     Dosage: 13MG DAILY
     Dates: start: 201209

REACTIONS (1)
  - Pain [Not Recovered/Not Resolved]
